FAERS Safety Report 10759149 (Version 1)
Quarter: 2015Q1

REPORT INFORMATION
  Report Type: Report from Study
  Country: US (occurrence: US)
  Receive Date: 20150203
  Receipt Date: 20150203
  Transmission Date: 20150721
  Serious: Yes (Hospitalization, Other)
  Sender: FDA-Public Use
  Company Number: GXBR2015US000602

PATIENT
  Age: 69 Year
  Sex: Female
  Weight: 85.71 kg

DRUGS (2)
  1. METFORMIN [Concomitant]
     Active Substance: METFORMIN HYDROCHLORIDE
     Indication: DIABETES MELLITUS
     Dosage: UNK MG, UNK
  2. ENOXAPARIN SODIUM. [Suspect]
     Active Substance: ENOXAPARIN SODIUM
     Indication: THROMBOSIS
     Dosage: 80 MG, BID
     Route: 058

REACTIONS (6)
  - Back pain [Recovered/Resolved]
  - Fracture [Not Recovered/Not Resolved]
  - Nasopharyngitis [Recovering/Resolving]
  - Fall [Recovered/Resolved]
  - Cough [Recovering/Resolving]
  - Decreased appetite [Recovered/Resolved]

NARRATIVE: CASE EVENT DATE: 201501
